FAERS Safety Report 21504279 (Version 2)
Quarter: 2022Q4

REPORT INFORMATION
  Report Type: Report from Study
  Country: US (occurrence: US)
  Receive Date: 20221025
  Receipt Date: 20221208
  Transmission Date: 20230112
  Serious: No
  Sender: FDA-Public Use
  Company Number: US-MYLANLABS-2022M1115782

PATIENT
  Age: 85 Year
  Sex: Female
  Weight: 92.53 kg

DRUGS (7)
  1. PREGABALIN [Suspect]
     Active Substance: PREGABALIN
     Indication: Product used for unknown indication
     Dosage: UNK
     Route: 065
  2. LYRICA [Suspect]
     Active Substance: PREGABALIN
     Indication: Neuropathy peripheral
     Dosage: 100 MILLIGRAM, QID (4 TIMES A DAY)
     Route: 065
     Dates: start: 20220916
  3. LEVOTHYROXINE [Concomitant]
     Active Substance: LEVOTHYROXINE
     Indication: Thyroiditis
     Dosage: 125 MILLIGRAM (5 DAYS A WEEK)
     Route: 065
  4. HUMALOG [Concomitant]
     Active Substance: INSULIN LISPRO
     Indication: Diabetes mellitus
     Dosage: UNK UNK, QD (3-4 TIMES DAILY)
     Route: 065
  5. LANTUS [Concomitant]
     Active Substance: INSULIN GLARGINE
     Indication: Diabetes mellitus
     Dosage: UNK, 26 UNITS BEFORE BEDTIME
     Route: 065
  6. ALPRAZOLAM [Concomitant]
     Active Substance: ALPRAZOLAM
     Indication: Somnolence
     Dosage: UNK, HALF TABLET
     Route: 065
  7. HYDROCHLOROTHIAZIDE [Concomitant]
     Active Substance: HYDROCHLOROTHIAZIDE
     Dosage: 5 TIMES A WEEK
     Route: 065

REACTIONS (5)
  - Adverse drug reaction [Unknown]
  - Gait disturbance [Not Recovered/Not Resolved]
  - Therapeutic product effect incomplete [Unknown]
  - Product tampering [Unknown]
  - Product quality issue [Unknown]

NARRATIVE: CASE EVENT DATE: 20221001
